FAERS Safety Report 9147810 (Version 2)
Quarter: 2013Q2

REPORT INFORMATION
  Report Type: Spontaneous
  Country: DE (occurrence: DE)
  Receive Date: 20130307
  Receipt Date: 20130510
  Transmission Date: 20140414
  Serious: Yes (Life-Threatening)
  Sender: FDA-Public Use
  Company Number: DE-SANOFI-AVENTIS-2013SA022372

PATIENT
  Age: 76 Year
  Sex: Female
  Weight: 60 kg

DRUGS (3)
  1. ENOXAPARIN SODIUM [Suspect]
     Indication: THROMBOSIS PROPHYLAXIS
     Dosage: DAILY DOSE: 70 MG MILLGRAM(S) EVERY DAYS
     Route: 058
     Dates: start: 201209, end: 201210
  2. METAMIZOLE SODIUM [Suspect]
     Indication: ANALGESIC THERAPY
     Dosage: DAILY DOSE: 90 GTT DROP(S) EVERY DAYS
     Route: 048
     Dates: start: 201209, end: 201210
  3. METHOTREXAT [Suspect]
     Indication: RHEUMATOID ARTHRITIS
     Route: 048
     Dates: end: 201210

REACTIONS (5)
  - Agranulocytosis [Recovered/Resolved]
  - Device related sepsis [Recovered/Resolved]
  - Stomatitis [Recovered/Resolved]
  - Fungal infection [Recovered/Resolved]
  - Thrombocytopenia [Recovered/Resolved]
